FAERS Safety Report 25934734 (Version 1)
Quarter: 2025Q4

REPORT INFORMATION
  Report Type: Spontaneous
  Country: CN (occurrence: CN)
  Receive Date: 20251017
  Receipt Date: 20251017
  Transmission Date: 20260117
  Serious: Yes (Other)
  Sender: RANBAXY
  Company Number: CN-SUN PHARMACEUTICAL INDUSTRIES INC-2025R1-531914

PATIENT
  Age: 78 Year
  Sex: Male

DRUGS (3)
  1. OLANZAPINE [Suspect]
     Active Substance: OLANZAPINE
     Indication: Mixed anxiety and depressive disorder
     Dosage: UNK (2.5 MG NIGHTLY)
     Route: 065
  2. FLUVOXAMINE [Suspect]
     Active Substance: FLUVOXAMINE
     Indication: Mixed anxiety and depressive disorder
     Dosage: UNK (25 MG NIGHTLY)
     Route: 048
     Dates: start: 20240128
  3. FLUVOXAMINE [Suspect]
     Active Substance: FLUVOXAMINE
     Dosage: UNK (50 MG NIGHTLY)
     Route: 048

REACTIONS (1)
  - Sideroblastic anaemia [Recovered/Resolved]
